FAERS Safety Report 8553144-7 (Version None)
Quarter: 2012Q3

REPORT INFORMATION
  Report Type: 
  Country: None (occurrence: None)
  Receive Date: 20120731
  Receipt Date: 20120717
  Transmission Date: 20120928
  Serious: No
  Sender: FDA-Public Use
  Company Number: US-JNJFOC-20120709740

PATIENT
  Age: 34 Year
  Sex: Male

DRUGS (7)
  1. INVEGA SUSTENNA [Suspect]
     Indication: SCHIZOPHRENIA
     Route: 030
     Dates: start: 20120626
  2. VALIUM [Concomitant]
     Dosage: 1-2 AS NEEDED AT BED TIME
     Route: 048
  3. INVEGA SUSTENNA [Suspect]
     Route: 030
     Dates: start: 20120101, end: 20120501
  4. COGENTIN [Concomitant]
     Indication: TARDIVE DYSKINESIA
     Route: 048
  5. KLONOPIN [Concomitant]
     Dosage: 1-2 AS NEEDED AT BED TIME
     Route: 048
  6. SEROQUEL [Concomitant]
     Dosage: 1-2 AS NEEDED AT BED TIME
     Route: 048
  7. LEXAPRO [Concomitant]
     Route: 048

REACTIONS (1)
  - BLOOD PRESSURE INCREASED [None]
